FAERS Safety Report 9559166 (Version 1)
Quarter: 2013Q2

REPORT INFORMATION
  Report Type: Spontaneous
  Country: US (occurrence: None)
  Receive Date: 20130617
  Receipt Date: 20130617
  Transmission Date: 20140414
  Serious: Yes (Life-Threatening, Hospitalization)
  Sender: FDA-Public Use
  Company Number: EUS-2013-00284

PATIENT
  Age: 3 Year
  Sex: Female

DRUGS (1)
  1. ERWINASE (ASPARAGINASE) [Suspect]
     Indication: ACUTE LYMPHOCYTIC LEUKAEMIA
     Route: 042
     Dates: start: 20130305, end: 20130305

REACTIONS (1)
  - Shock [None]
